FAERS Safety Report 16820611 (Version 1)
Quarter: 2019Q3

REPORT INFORMATION
  Report Type: Spontaneous
  Country: FR (occurrence: FR)
  Receive Date: 20190918
  Receipt Date: 20190918
  Transmission Date: 20191005
  Serious: Yes (Other)
  Sender: FDA-Public Use
  Company Number: FR-TEVA-2019-FR-1108211

PATIENT
  Age: 54 Year
  Sex: Female
  Weight: 87 kg

DRUGS (1)
  1. DACARBAZINE. [Suspect]
     Active Substance: DACARBAZINE
     Indication: LEIOMYOSARCOMA
     Dosage: 2381 MG
     Route: 042
     Dates: start: 20180920

REACTIONS (2)
  - Hypotension [Recovered/Resolved]
  - Tachycardia [Recovered/Resolved]

NARRATIVE: CASE EVENT DATE: 20181129
